FAERS Safety Report 5895863-7 (Version None)
Quarter: 2008Q3

REPORT INFORMATION
  Report Type: 
  Country: None (occurrence: None)
  Receive Date: 20080924
  Receipt Date: 20080918
  Transmission Date: 20090109
  Serious: Yes (Other)
  Sender: FDA-Public Use
  Company Number: US-JNJCH-2008024493

PATIENT
  Age: 15 Year
  Sex: Female

DRUGS (1)
  1. LISTERINE [Suspect]
     Indication: FEELING DRUNK
     Dosage: TEXT:WHOLE BOTTLE
     Route: 048

REACTIONS (2)
  - ALCOHOL PROBLEM [None]
  - INCORRECT ROUTE OF DRUG ADMINISTRATION [None]
